FAERS Safety Report 15844910 (Version 1)
Quarter: 2019Q1

REPORT INFORMATION
  Report Type: Spontaneous
  Country: ES (occurrence: ES)
  Receive Date: 20190118
  Receipt Date: 20190118
  Transmission Date: 20190417
  Serious: Yes (Other)
  Sender: FDA-Public Use
  Company Number: ES-AUROBINDO-AUR-APL-2018-060469

PATIENT
  Age: 48 Year
  Sex: Male

DRUGS (3)
  1. AMOXICILLIN. [Suspect]
     Active Substance: AMOXICILLIN
     Indication: HELICOBACTER INFECTION
     Dosage: 2 GRAM, ONCE A DAY, 1 G, BID
     Route: 065
  2. METRONIDAZOLE. [Suspect]
     Active Substance: METRONIDAZOLE
     Indication: HELICOBACTER INFECTION
     Dosage: 1500 MILLIGRAM, ONCE A DAY, 500 MG, TID
     Route: 065
  3. OMEPRAZOLE. [Suspect]
     Active Substance: OMEPRAZOLE
     Indication: HELICOBACTER INFECTION
     Dosage: 20 MILLIGRAM, TWO TIMES A DAY (FOR 14 DAYS)
     Route: 065

REACTIONS (7)
  - Neck pain [Recovering/Resolving]
  - Spinal osteoarthritis [Recovering/Resolving]
  - Mobility decreased [Recovering/Resolving]
  - Muscle spasms [Recovering/Resolving]
  - Musculoskeletal stiffness [Recovering/Resolving]
  - Dysphagia [Recovering/Resolving]
  - Muscle contractions involuntary [Recovering/Resolving]
